FAERS Safety Report 13357166 (Version 2)
Quarter: 2017Q2

REPORT INFORMATION
  Report Type: Report from Study
  Country: None (occurrence: CA)
  Receive Date: 20170322
  Receipt Date: 20170410
  Transmission Date: 20170830
  Serious: Yes (Hospitalization)
  Sender: FDA-Public Use
  Company Number: CA-ABBVIE-17K-028-1862073-00

PATIENT
  Age: 11 Year
  Sex: Male
  Weight: 34.6 kg

DRUGS (1)
  1. HUMIRA [Suspect]
     Active Substance: ADALIMUMAB
     Indication: CROHN^S DISEASE
     Route: 058
     Dates: start: 20160311, end: 20170310

REACTIONS (5)
  - Frequent bowel movements [Not Recovered/Not Resolved]
  - Drug effect decreased [Unknown]
  - Haematuria [Not Recovered/Not Resolved]
  - Drug level decreased [Unknown]
  - Crohn^s disease [Unknown]

NARRATIVE: CASE EVENT DATE: 201603
